FAERS Safety Report 9214981 (Version 2)
Quarter: 2013Q2

REPORT INFORMATION
  Report Type: Spontaneous
  Country: BR (occurrence: BR)
  Receive Date: 20130405
  Receipt Date: 20130517
  Transmission Date: 20140414
  Serious: Yes (Other)
  Sender: FDA-Public Use
  Company Number: BR-AMGEN-BRASP2013022844

PATIENT
  Age: 57 Year
  Sex: Female
  Weight: 104 kg

DRUGS (3)
  1. ENBREL [Suspect]
     Indication: RHEUMATOID ARTHRITIS
     Dosage: 50 MG, 1X/WEEK
     Route: 058
     Dates: start: 201211
  2. LOSARTAN [Concomitant]
     Indication: BLOOD PRESSURE
     Dosage: UNK
  3. REUQUINOL [Concomitant]
     Dosage: UNK

REACTIONS (1)
  - Arthropathy [Recovered/Resolved]
